FAERS Safety Report 7633060-5 (Version None)
Quarter: 2011Q3

REPORT INFORMATION
  Report Type: 
  Country: None (occurrence: None)
  Receive Date: 20110725
  Receipt Date: 20110720
  Transmission Date: 20111222
  Serious: Yes (Death, Hospitalization, Other)
  Sender: FDA-Public Use
  Company Number: PHEH2006US11914

PATIENT
  Sex: Female
  Weight: 58.049 kg

DRUGS (34)
  1. CELEXA [Concomitant]
  2. VITAMIN D [Concomitant]
  3. IBUPROFEN [Concomitant]
  4. LYRICA [Concomitant]
     Dosage: 50 MG, BID
  5. CYCLOPHOSPHAMIDE [Concomitant]
  6. CYTOXAN [Concomitant]
  7. AREDIA [Suspect]
     Indication: BREAST CANCER
     Dosage: UNK
  8. MAGNESIUM OXIDE [Concomitant]
  9. LEVAQUIN [Concomitant]
  10. AVELOX [Concomitant]
     Dosage: 400 MG, DAILY
  11. POTASSIUM CHLORIDE [Concomitant]
  12. PREVACID [Concomitant]
     Dosage: 30 MG, UNK
  13. ADRIAMYCIN PFS [Concomitant]
  14. VICODIN [Concomitant]
     Indication: PAIN IN JAW
  15. AROMASIN [Concomitant]
  16. XELODA [Concomitant]
  17. PRILOSEC [Concomitant]
     Dosage: 20 MG, BID
  18. RADIATION THERAPY [Concomitant]
  19. FEMARA [Concomitant]
     Indication: BREAST CANCER
     Dosage: 2.5 MG, QD
     Route: 048
  20. TOBRADEX [Concomitant]
  21. ASPIRIN [Concomitant]
  22. ACETAMINOPHEN [Concomitant]
  23. TAXOTERE [Concomitant]
  24. TYLENOL-500 [Concomitant]
  25. TAXOL [Concomitant]
  26. SIMVASTATIN [Concomitant]
     Dosage: 20 MG, QD
     Route: 048
  27. ONDANSETRON [Concomitant]
  28. COMPAZINE [Concomitant]
  29. CLOTRIMAZOLE [Concomitant]
     Dosage: 10 MG, TID
  30. ZOMETA [Suspect]
     Indication: METASTASES TO BONE
     Dosage: UNK, QMO
     Dates: start: 20020701, end: 20040907
  31. COUMADIN [Concomitant]
  32. TEMAZEPAM [Concomitant]
  33. FLAGYL [Concomitant]
  34. COMBIVENT [Concomitant]

REACTIONS (71)
  - PULMONARY HILUM MASS [None]
  - PNEUMONIA [None]
  - PYREXIA [None]
  - CHILLS [None]
  - PLEURAL EFFUSION [None]
  - MUSCULAR WEAKNESS [None]
  - MIGRAINE [None]
  - VISION BLURRED [None]
  - HYPERKALAEMIA [None]
  - NEOPLASM MALIGNANT [None]
  - SEPTIC SHOCK [None]
  - DEFORMITY [None]
  - SEPSIS [None]
  - BREAST CYST [None]
  - LYMPHADENOPATHY [None]
  - PALMAR-PLANTAR ERYTHRODYSAESTHESIA SYNDROME [None]
  - SKIN ULCER [None]
  - METASTASES TO CENTRAL NERVOUS SYSTEM [None]
  - GENERAL PHYSICAL HEALTH DETERIORATION [None]
  - DENTAL CARIES [None]
  - HYPERPLASIA [None]
  - LUMBAR SPINAL STENOSIS [None]
  - FATIGUE [None]
  - DEPRESSION [None]
  - BIOPSY BREAST ABNORMAL [None]
  - PAIN IN JAW [None]
  - BRONCHIAL DISORDER [None]
  - AORTIC VALVE SCLEROSIS [None]
  - LACRIMATION INCREASED [None]
  - MASS [None]
  - EXOSTOSIS [None]
  - PAIN [None]
  - BONE DISORDER [None]
  - NEUTROPENIA [None]
  - HYPOTENSION [None]
  - PULMONARY HYPERTENSION [None]
  - TACHYCARDIA [None]
  - GASTROOESOPHAGEAL REFLUX DISEASE [None]
  - METASTASES TO ADRENALS [None]
  - ANAEMIA [None]
  - CENTRAL NERVOUS SYSTEM LESION [None]
  - HYPOPHAGIA [None]
  - ANXIETY [None]
  - COLONIC POLYP [None]
  - ASTHENIA [None]
  - PULMONARY OEDEMA [None]
  - GAIT DISTURBANCE [None]
  - DECREASED APPETITE [None]
  - HERPES ZOSTER [None]
  - PULMONARY FIBROSIS [None]
  - ABDOMINAL DISCOMFORT [None]
  - LUNG INFILTRATION [None]
  - HYPOKALAEMIA [None]
  - NEOPLASM PROGRESSION [None]
  - OSTEONECROSIS OF JAW [None]
  - EMOTIONAL DISTRESS [None]
  - DECREASED INTEREST [None]
  - INTERVERTEBRAL DISC PROTRUSION [None]
  - ALOPECIA [None]
  - URETERIC DILATATION [None]
  - WOUND [None]
  - BREAST CANCER METASTATIC [None]
  - BLOOD GLUCOSE INCREASED [None]
  - ATELECTASIS [None]
  - COUGH [None]
  - ORAL CANDIDIASIS [None]
  - OSTEOARTHRITIS [None]
  - DYSPEPSIA [None]
  - DIPLOPIA [None]
  - THROMBOCYTOPENIA [None]
  - MYOPIA [None]
